FAERS Safety Report 8737871 (Version 2)
Quarter: 2012Q4

REPORT INFORMATION
  Report Type: 
  Country: JP (occurrence: JP)
  Receive Date: 20120823
  Receipt Date: 20120904
  Transmission Date: 20130627
  Serious: Yes (Other)
  Sender: FDA-Public Use
  Company Number: JP-MERCK-1208JPN005476

PATIENT

DRUGS (1)
  1. GASTER [Suspect]
     Dosage: 20 mg, qd
     Route: 048

REACTIONS (1)
  - Electrocardiogram QT prolonged [Unknown]
